FAERS Safety Report 8445011-4 (Version None)
Quarter: 2012Q2

REPORT INFORMATION
  Report Type: 
  Country: None (occurrence: None)
  Receive Date: 20120618
  Receipt Date: 20120607
  Transmission Date: 20120825
  Serious: Yes (Hospitalization)
  Sender: FDA-Public Use
  Company Number: US-SAVIENT-2012S1000053

PATIENT
  Age: 59 Year
  Sex: Male

DRUGS (13)
  1. HYDROCORTISONE [Concomitant]
     Indication: PREMEDICATION
     Route: 042
     Dates: start: 20120101, end: 20120401
  2. FEXOFENADINE [Concomitant]
     Dates: start: 20120531
  3. ACETAMINOPHEN [Concomitant]
     Dates: start: 20120531
  4. OXYCODONE HCL [Concomitant]
     Indication: PRODUCT USED FOR UNKNOWN INDICATION
  5. NEXIUM [Concomitant]
     Indication: PRODUCT USED FOR UNKNOWN INDICATION
  6. KRYSTEXXA [Suspect]
     Indication: GOUT
     Route: 042
     Dates: start: 20120101, end: 20120401
  7. HYDROCORTISONE [Concomitant]
     Route: 042
     Dates: start: 20120531
  8. COLCHICINE [Concomitant]
     Indication: PRODUCT USED FOR UNKNOWN INDICATION
  9. PREDNISONE [Concomitant]
     Indication: ORGANISING PNEUMONIA
  10. KRYSTEXXA [Suspect]
     Route: 042
     Dates: start: 20120531
  11. FEXOFENADINE [Concomitant]
     Indication: PREMEDICATION
     Route: 048
     Dates: start: 20120101, end: 20120401
  12. ACETAMINOPHEN [Concomitant]
     Indication: PREMEDICATION
     Dates: start: 20120101, end: 20120401
  13. ATENOLOL [Concomitant]
     Indication: PRODUCT USED FOR UNKNOWN INDICATION

REACTIONS (2)
  - GOUT [None]
  - ORGANISING PNEUMONIA [None]
